FAERS Safety Report 8126566-6 (Version None)
Quarter: 2012Q1

REPORT INFORMATION
  Report Type: 
  Country: None (occurrence: None)
  Receive Date: 20120210
  Receipt Date: 20120131
  Transmission Date: 20120608
  Serious: Yes (Hospitalization)
  Sender: FDA-Public Use
  Company Number: 113939

PATIENT
  Age: 49 Year
  Sex: Female
  Weight: 45 kg

DRUGS (5)
  1. ZANAFLEX [Concomitant]
     Indication: MUSCLE RELAXANT THERAPY
     Dates: start: 19971201
  2. AVONEX [Suspect]
     Indication: MULTIPLE SCLEROSIS
     Route: 030
     Dates: start: 19970101
  3. CYLERT [Concomitant]
     Indication: ENERGY INCREASED
  4. PREVACID [Concomitant]
     Indication: ULCER
  5. DALMANE [Concomitant]
     Indication: INSOMNIA

REACTIONS (17)
  - THROMBOSIS [None]
  - PANCREATITIS [None]
  - STAPHYLOCOCCAL INFECTION [None]
  - DYSPHAGIA [None]
  - POST PROCEDURAL FISTULA [None]
  - DEHYDRATION [None]
  - SPEECH DISORDER [None]
  - PEPTIC ULCER [None]
  - PLEURISY [None]
  - HIATUS HERNIA [None]
  - OEDEMA PERIPHERAL [None]
  - SWELLING FACE [None]
  - CYSTITIS [None]
  - INFLUENZA LIKE ILLNESS [None]
  - BENIGN PANCREATIC NEOPLASM [None]
  - INFUSION SITE PAIN [None]
  - MULTIPLE SCLEROSIS RELAPSE [None]
